FAERS Safety Report 24128548 (Version 1)
Quarter: 2024Q3

REPORT INFORMATION
  Report Type: Spontaneous
  Country: US (occurrence: US)
  Receive Date: 20240723
  Receipt Date: 20240723
  Transmission Date: 20241016
  Serious: No
  Sender: NOVO NORDISK
  Company Number: US-NOVOPROD-1169516

PATIENT

DRUGS (1)
  1. RYBELSUS [Suspect]
     Active Substance: SEMAGLUTIDE
     Indication: Diabetes mellitus
     Dosage: 7MG
     Route: 048
     Dates: start: 202212

REACTIONS (3)
  - Hypertension [Unknown]
  - Blood creatine increased [Unknown]
  - Red cell distribution width increased [Unknown]
